FAERS Safety Report 17425384 (Version 2)
Quarter: 2020Q3

REPORT INFORMATION
  Report Type: Report from Study
  Country: US (occurrence: US)
  Receive Date: 20200217
  Receipt Date: 20200702
  Transmission Date: 20201102
  Serious: Yes (Hospitalization, Other)
  Sender: FDA-Public Use
  Company Number: US-MYLANLABS-2019M1056135

PATIENT
  Age: 55 Year
  Sex: Female
  Weight: 100 kg

DRUGS (1)
  1. GLATIRAMER ACETATE INJECTION [Suspect]
     Active Substance: GLATIRAMER ACETATE
     Indication: RELAPSING-REMITTING MULTIPLE SCLEROSIS
     Dosage: 40 MILLIGRAM, 3XW
     Route: 058

REACTIONS (16)
  - Dehydration [Unknown]
  - Eye pain [Unknown]
  - Cough [Unknown]
  - Product dose omission issue [Recovered/Resolved]
  - Rhinorrhoea [Unknown]
  - Feeling abnormal [Unknown]
  - Injection site mass [Unknown]
  - Oropharyngeal pain [Unknown]
  - Bladder pain [Unknown]
  - Injection site pain [Unknown]
  - Skin odour abnormal [Unknown]
  - Fall [Unknown]
  - Memory impairment [Unknown]
  - Injection site bruising [Unknown]
  - Lethargy [Unknown]
  - Visual impairment [Unknown]

NARRATIVE: CASE EVENT DATE: 201912
